FAERS Safety Report 4825124-6 (Version None)
Quarter: 2005Q4

REPORT INFORMATION
  Report Type: 
  Country: None (occurrence: None)
  Receive Date: 20051109
  Receipt Date: 20051109
  Transmission Date: 20060501
  Serious: No
  Sender: FDA-Public Use
  Company Number: None

PATIENT
  Sex: Male
  Weight: 110.6777 kg

DRUGS (1)
  1. JANTOVEN [Suspect]
     Indication: CEREBROVASCULAR ACCIDENT
     Dosage: 6MG- 6 DAYS/WK ; 2MG- 1 DAY/WK
     Dates: start: 20050915

REACTIONS (3)
  - ANAEMIA [None]
  - HAEMATOCHEZIA [None]
  - RECTAL HAEMORRHAGE [None]
